FAERS Safety Report 4450245-X (Version None)
Quarter: 2004Q3

REPORT INFORMATION
  Report Type: 
  Country: None (occurrence: None)
  Receive Date: 20040914
  Receipt Date: 20040901
  Transmission Date: 20050211
  Serious: Yes (Hospitalization)
  Sender: FDA-Public Use
  Company Number: 2004225491DE

PATIENT
  Age: 19 Year
  Sex: Female
  Weight: 68 kg

DRUGS (1)
  1. CELEBREX [Suspect]
     Indication: PAIN IN JAW
     Dosage: ORAL
     Route: 048
     Dates: start: 20040710, end: 20040714

REACTIONS (3)
  - DIARRHOEA HAEMORRHAGIC [None]
  - GASTROINTESTINAL MUCOSAL DISORDER [None]
  - NAUSEA [None]
